FAERS Safety Report 16984662 (Version 1)
Quarter: 2019Q4

REPORT INFORMATION
  Report Type: Spontaneous
  Country: JP (occurrence: JP)
  Receive Date: 20191101
  Receipt Date: 20191101
  Transmission Date: 20200122
  Serious: Yes (Hospitalization, Other)
  Sender: FDA-Public Use
  Company Number: JP-BAYER-2019-194026

PATIENT
  Age: 7 Decade
  Sex: Female

DRUGS (11)
  1. NEXAVAR [Suspect]
     Active Substance: SORAFENIB
     Indication: METASTASES TO LUNG
  2. LIPIODOL ULTRA-FLUIDE [Concomitant]
     Active Substance: ETHIODIZED OIL
     Indication: HEPATOCELLULAR CARCINOMA
  3. GELATIN [Concomitant]
     Active Substance: GELATIN
     Indication: HEPATOCELLULAR CARCINOMA
  4. NEXAVAR [Suspect]
     Active Substance: SORAFENIB
     Indication: HEPATOCELLULAR CARCINOMA
     Dosage: UNK
     Route: 048
  5. STIVARGA [Suspect]
     Active Substance: REGORAFENIB
     Indication: HEPATOCELLULAR CARCINOMA
  6. STIVARGA [Suspect]
     Active Substance: REGORAFENIB
     Indication: METASTASIS
  7. EPIRUBICIN HYDROCHLORIDE. [Concomitant]
     Active Substance: EPIRUBICIN HYDROCHLORIDE
     Indication: TRANSCATHETER ARTERIAL CHEMOEMBOLISATION
  8. NEXAVAR [Suspect]
     Active Substance: SORAFENIB
     Indication: METASTASES TO ADRENALS
     Dosage: UNK
     Route: 048
  9. LIPIODOL ULTRA-FLUIDE [Concomitant]
     Active Substance: ETHIODIZED OIL
     Indication: TRANSCATHETER ARTERIAL CHEMOEMBOLISATION
  10. EPIRUBICIN HYDROCHLORIDE. [Concomitant]
     Active Substance: EPIRUBICIN HYDROCHLORIDE
     Indication: HEPATOCELLULAR CARCINOMA
  11. GELATIN [Concomitant]
     Active Substance: GELATIN
     Indication: TRANSCATHETER ARTERIAL CHEMOEMBOLISATION

REACTIONS (6)
  - Metastasis [None]
  - Metastases to adrenals [None]
  - Metastases to liver [None]
  - Hepatocellular carcinoma [Unknown]
  - Metastases to lung [None]
  - Therapeutic product effect incomplete [None]
